FAERS Safety Report 19349265 (Version 1)
Quarter: 2021Q2

REPORT INFORMATION
  Report Type: Spontaneous
  Country: US (occurrence: US)
  Receive Date: 20210531
  Receipt Date: 20210531
  Transmission Date: 20210717
  Serious: Yes (Other)
  Sender: FDA-Public Use
  Company Number: US-LUPIN PHARMACEUTICALS INC.-2021-08062

PATIENT
  Age: 41 Year
  Sex: Male

DRUGS (9)
  1. LOTEPREDNOL [Suspect]
     Active Substance: LOTEPREDNOL
     Indication: CORNEAL ABRASION
     Dosage: UNK UNK, QD
     Route: 061
  2. DIFLUPREDNATE [Suspect]
     Active Substance: DIFLUPREDNATE
     Indication: SYMPTOMATIC TREATMENT
     Dosage: UNK UNK, QID
     Route: 061
  3. VALACICLOVIR [Concomitant]
     Active Substance: VALACYCLOVIR HYDROCHLORIDE
     Indication: OPHTHALMIC HERPES SIMPLEX
     Dosage: UNK UNK, TID
     Route: 048
  4. LOTEPREDNOL [Suspect]
     Active Substance: LOTEPREDNOL
     Dosage: UNK UNK, BID (INCREASED) MAINTAINED
     Route: 061
  5. DIFLUPREDNATE [Suspect]
     Active Substance: DIFLUPREDNATE
     Dosage: UNK
     Route: 061
  6. VALACICLOVIR [Concomitant]
     Active Substance: VALACYCLOVIR HYDROCHLORIDE
     Dosage: UNK UNK, TID (MAINTAINED)
     Route: 048
  7. OFLOXACIN. [Concomitant]
     Active Substance: OFLOXACIN
     Indication: ANTIBIOTIC PROPHYLAXIS
     Dosage: UNK, MAINTAINED
     Route: 061
  8. GANCICLOVIR. [Concomitant]
     Active Substance: GANCICLOVIR
     Indication: OPHTHALMIC HERPES SIMPLEX
     Dosage: UNK UNK, QID
     Route: 061
  9. TOBRAMYCIN. [Suspect]
     Active Substance: TOBRAMYCIN
     Indication: CORNEAL ABRASION
     Dosage: UNK UNK, QID
     Route: 061

REACTIONS (4)
  - Infective keratitis [Recovered/Resolved]
  - Corneal abrasion [Recovered/Resolved]
  - Condition aggravated [Recovered/Resolved]
  - Nocardiosis [Recovered/Resolved]
